FAERS Safety Report 7334761-9 (Version None)
Quarter: 2011Q1

REPORT INFORMATION
  Report Type: 
  Country: None (occurrence: None)
  Receive Date: 20110307
  Receipt Date: 20110225
  Transmission Date: 20110831
  Serious: Yes (Death)
  Sender: FDA-Public Use
  Company Number: GB-MPIJNJ-2010-06189

PATIENT

DRUGS (4)
  1. FLUCONAZOLE [Concomitant]
     Indication: PROPHYLAXIS
     Dosage: 50 MG, UNK
     Dates: start: 20100719
  2. LANSOPRAZOLE [Concomitant]
     Indication: PROPHYLAXIS
     Dosage: 30 MG, UNK
     Dates: start: 20100719
  3. VELCADE [Suspect]
     Indication: MULTIPLE MYELOMA
     Dosage: UNK
     Dates: start: 20100719, end: 20101007
  4. ACICLOVIR [Concomitant]
     Indication: PROPHYLAXIS
     Dosage: 400 MG, UNK
     Dates: start: 20100719

REACTIONS (2)
  - DISEASE PROGRESSION [None]
  - DRUG INEFFECTIVE [None]
